FAERS Safety Report 16314869 (Version 1)
Quarter: 2019Q2

REPORT INFORMATION
  Report Type: Spontaneous
  Country: FR (occurrence: FR)
  Receive Date: 20190515
  Receipt Date: 20190515
  Transmission Date: 20190711
  Serious: Yes (Hospitalization)
  Sender: FDA-Public Use
  Company Number: FR-PFIZER INC-2019199608

PATIENT
  Age: 21 Year
  Sex: Male
  Weight: 75.3 kg

DRUGS (8)
  1. ESOMEPRAZOLE MAGNESIUM. [Suspect]
     Active Substance: ESOMEPRAZOLE MAGNESIUM
     Indication: POISONING DELIBERATE
     Dosage: 240 MG, SINGLE
     Route: 048
     Dates: start: 20181105, end: 20181105
  2. THIOCOLCHICOSIDE [Suspect]
     Active Substance: THIOCOLCHICOSIDE
     Indication: POISONING DELIBERATE
     Dosage: 48 MG, SINGLE
     Route: 048
     Dates: start: 20181105, end: 20181105
  3. IZALGI [Suspect]
     Active Substance: ACETAMINOPHEN\OPIUM
     Indication: POISONING DELIBERATE
     Dosage: 72 DF, SINGLE
     Route: 048
     Dates: start: 20181105, end: 20181105
  4. METOPIMAZINE [Suspect]
     Active Substance: METOPIMAZINE
     Indication: POISONING DELIBERATE
     Dosage: 20 DF, SINGLE
     Route: 048
     Dates: start: 20181105, end: 20181105
  5. RACECADOTRIL [Suspect]
     Active Substance: RACECADOTRIL
     Indication: POISONING DELIBERATE
     Dosage: 10 DF, SINGLE
     Route: 048
     Dates: start: 20181105, end: 20181105
  6. IBUPROFEN. [Suspect]
     Active Substance: IBUPROFEN
     Indication: POISONING DELIBERATE
     Dosage: 12 G, SINGLE
     Route: 048
     Dates: start: 20181105, end: 20181105
  7. ETIFOXINE HYDROCHLORIDE [Suspect]
     Active Substance: ETIFOXINE HYDROCHLORIDE
     Indication: POISONING DELIBERATE
     Dosage: 60 DF, SINGLE
     Route: 048
     Dates: start: 20181105, end: 20181105
  8. PARACETAMOL [Suspect]
     Active Substance: ACETAMINOPHEN
     Indication: POISONING DELIBERATE
     Dosage: 43 G, SINGLE
     Route: 048
     Dates: start: 20181105, end: 20181105

REACTIONS (1)
  - Acute hepatic failure [Recovering/Resolving]

NARRATIVE: CASE EVENT DATE: 20181106
